FAERS Safety Report 4554114-6 (Version None)
Quarter: 2005Q1

REPORT INFORMATION
  Report Type: 
  Country: None (occurrence: None)
  Receive Date: 20050113
  Receipt Date: 20050113
  Transmission Date: 20050727
  Serious: Yes (Other)
  Sender: FDA-Public Use
  Company Number: None

PATIENT
  Sex: Female
  Weight: 80.7403 kg

DRUGS (7)
  1. DAPTOMYCIN 500MG VL  CUBIST [Suspect]
     Indication: ARTHRITIS BACTERIAL
     Dosage: 400MG QD INTRAVENOUS
     Route: 042
     Dates: start: 20041104, end: 20041215
  2. IBUPROFEN [Suspect]
     Indication: ARTHRALGIA
     Dosage: 800MG  BID ORAL
     Route: 048
     Dates: start: 20040901, end: 20050111
  3. IBUPROFEN [Suspect]
     Indication: ARTHRITIS
     Dosage: 800MG  BID ORAL
     Route: 048
     Dates: start: 20040901, end: 20050111
  4. MAXZIDE [Concomitant]
  5. TOPROL-XL [Concomitant]
  6. KCL TAB [Concomitant]
  7. PAXIL [Concomitant]

REACTIONS (2)
  - DYSKINESIA [None]
  - TREMOR [None]
